FAERS Safety Report 7020446-5 (Version None)
Quarter: 2010Q3

REPORT INFORMATION
  Report Type: 
  Country: None (occurrence: None)
  Receive Date: 20100927
  Receipt Date: 20100915
  Transmission Date: 20110219
  Serious: Yes (Disabling)
  Sender: FDA-Public Use
  Company Number: 2010MA002723

PATIENT
  Age: 59 Year
  Sex: Male

DRUGS (11)
  1. SULFATRIM [Suspect]
     Indication: PNEUMOCYSTIS JIROVECI PNEUMONIA
     Dosage: 3840 MG;BID; IV
     Route: 042
     Dates: start: 20090929
  2. PROGRAF [Concomitant]
  3. ARANESP [Concomitant]
  4. CELLCEPT [Concomitant]
  5. CALCICHEW [Concomitant]
  6. ALFACALCIDOL [Concomitant]
  7. GLICLAZIDE [Concomitant]
  8. PREDNISOLONE [Concomitant]
  9. ACYCLOVIR [Concomitant]
  10. TAZOCIN [Concomitant]
  11. DALTEPARIN SODIUM [Concomitant]

REACTIONS (5)
  - ABNORMAL BEHAVIOUR [None]
  - AGITATION [None]
  - CONFUSIONAL STATE [None]
  - MUSCLE TWITCHING [None]
  - TREMOR [None]
